FAERS Safety Report 5851330-8 (Version None)
Quarter: 2008Q3

REPORT INFORMATION
  Report Type: 
  Country: None (occurrence: None)
  Receive Date: 20080820
  Receipt Date: 20080808
  Transmission Date: 20090109
  Serious: Yes (Hospitalization)
  Sender: FDA-Public Use
  Company Number: CA-TYCO HEALTHCARE/MALLINCKRODT-T200801270

PATIENT

DRUGS (15)
  1. MORPHINE [Suspect]
     Indication: DRUG USE FOR UNKNOWN INDICATION
     Dosage: MAXIMUM 9500 MG POSSIBLE INGESTION
  2. MORPHINE [Suspect]
     Indication: DEPRESSION
     Dosage: MAXIMUM 2640 MG POSSIBLE INGESTION
  3. MORPHINE [Suspect]
     Dosage: MAXIMUM OF 2640 MG INGESTED
  4. MORPHINE [Suspect]
     Dosage: MAXIMUM 420 MG POSSIBLE INGESTION
  5. OXYCODONE HCL [Suspect]
     Indication: DRUG USE FOR UNKNOWN INDICATION
     Dosage: 10 MG EXTENDED RELEASE
  6. OXYCODONE HCL [Suspect]
     Dosage: UNK, UNK
  7. ESCITALOPRAM [Suspect]
     Indication: DEPRESSION
     Dosage: MAXIMUM 140 MG POSSIBLE INGESTION
  8. ESCITALOPRAM [Suspect]
     Dosage: MAXIMUM OF 140 MG INGESTED
  9. DIAZEPAM [Suspect]
     Indication: DRUG USE FOR UNKNOWN INDICATION
     Dosage: MAXIMUM 1800 MG POSSIBLE INGESTION
  10. ZOPICLONE [Suspect]
     Indication: DEPRESSION
     Dosage: MAXIMUM 187.5 MG POSSIBLE INGESTION
  11. ZOPICLONE [Suspect]
     Dosage: MAXIMUM OF 187.5 MG INGESTED
  12. LORAZEPAM [Suspect]
     Indication: DRUG USE FOR UNKNOWN INDICATION
     Dosage: MAXIMUM 30 MG POSSIBLE INGESTION
  13. ACETAMINOPHEN AND OXYCODONE HCL [Suspect]
     Indication: DRUG USE FOR UNKNOWN INDICATION
     Dosage: UNLIKLEY THIS WAS INGESTED
  14. CITALOPRAM HYDROBROMIDE [Suspect]
     Indication: DRUG USE FOR UNKNOWN INDICATION
     Dosage: POSSIBLE THAT INGESTED
  15. RAMIPRIL [Concomitant]
     Indication: HYPERTENSION
     Dosage: 5 MG, QD

REACTIONS (5)
  - ELECTROCARDIOGRAM QRS COMPLEX ABNORMAL [None]
  - ELECTROCARDIOGRAM QT PROLONGED [None]
  - LOSS OF CONSCIOUSNESS [None]
  - NODAL RHYTHM [None]
  - OVERDOSE [None]
